FAERS Safety Report 6779302-X (Version None)
Quarter: 2010Q2

REPORT INFORMATION
  Report Type: 
  Country: None (occurrence: None)
  Receive Date: 20100618
  Receipt Date: 20100607
  Transmission Date: 20101027
  Serious: Yes (Hospitalization, Other)
  Sender: FDA-Public Use
  Company Number: PHHY2010DE36953

PATIENT
  Sex: Male

DRUGS (1)
  1. GLEEVEC [Suspect]
     Dosage: 800 MG/DAY
     Route: 048
     Dates: end: 20100601

REACTIONS (4)
  - CHEST PAIN [None]
  - INFLAMMATORY MARKER INCREASED [None]
  - PERICARDIAL EFFUSION [None]
  - VIRAL INFECTION [None]
